FAERS Safety Report 19455570 (Version 5)
Quarter: 2021Q3

REPORT INFORMATION
  Report Type: Spontaneous
  Country: AR (occurrence: AR)
  Receive Date: 20210623
  Receipt Date: 20210816
  Transmission Date: 20211014
  Serious: Yes (Other)
  Sender: FDA-Public Use
  Company Number: AR-AMGEN-ARGSP2021095309

PATIENT
  Age: 75 Year
  Sex: Female

DRUGS (3)
  1. ENBREL [Suspect]
     Active Substance: ETANERCEPT
     Indication: RHEUMATOID ARTHRITIS
     Dosage: 50 MG, WEEKLY
     Route: 065
     Dates: start: 20080102
  2. TAFIROL 1 G [Concomitant]
     Dosage: 1 G, 2X/DAY
  3. LOTRIAL [ENALAPRIL MALEATE] [Concomitant]
     Dosage: UNK

REACTIONS (6)
  - Systemic scleroderma [Unknown]
  - Malaise [Not Recovered/Not Resolved]
  - Therapeutic product effect incomplete [Not Recovered/Not Resolved]
  - Hypertension [Unknown]
  - Multiple sclerosis [Not Recovered/Not Resolved]
  - Lown-Ganong-Levine syndrome [Unknown]
